FAERS Safety Report 8767499 (Version 2)
Quarter: 2012Q4

REPORT INFORMATION
  Report Type: 
  Country: US (occurrence: US)
  Receive Date: 20120904
  Receipt Date: 20121024
  Transmission Date: 20130627
  Serious: No
  Sender: FDA-Public Use
  Company Number: US-B.I. PHARMACEUTICALS,INC./RIDGEFIELD-2012-BP-21223BP

PATIENT
  Age: 63 Year
  Sex: Female

DRUGS (5)
  1. TRADJENTA [Suspect]
     Indication: TYPE 2 DIABETES MELLITUS
     Dosage: 5 mg
     Route: 048
     Dates: start: 20120829, end: 20120904
  2. TRADJENTA [Suspect]
     Indication: TYPE 2 DIABETES MELLITUS
  3. METFORMIN [Concomitant]
     Indication: TYPE 2 DIABETES MELLITUS
     Dosage: 2000 mg
     Route: 048
     Dates: start: 2002
  4. PRILOSEC [Concomitant]
     Indication: GASTROOESOPHAGEAL REFLUX DISEASE
     Route: 048
     Dates: start: 2011
  5. GLIMEPIRIDE [Concomitant]
     Indication: TYPE 2 DIABETES MELLITUS
     Dosage: 4 mg
     Route: 048
     Dates: start: 2002

REACTIONS (7)
  - Hyperhidrosis [Recovered/Resolved]
  - Paraesthesia [Recovered/Resolved]
  - Dizziness [Recovered/Resolved]
  - Disturbance in sexual arousal [Recovered/Resolved]
  - Blood glucose increased [Not Recovered/Not Resolved]
  - Choking sensation [Not Recovered/Not Resolved]
  - Retching [Not Recovered/Not Resolved]
